FAERS Safety Report 9443597 (Version 2)
Quarter: 2013Q3

REPORT INFORMATION
  Report Type: Report from Study
  Country: GB (occurrence: GB)
  Receive Date: 20130806
  Receipt Date: 20130814
  Transmission Date: 20140515
  Serious: Yes (Hospitalization)
  Sender: FDA-Public Use
  Company Number: PHHO2013GB010125

PATIENT
  Age: 58 Year
  Sex: Female
  Weight: 57 kg

DRUGS (6)
  1. AFINITOR [Suspect]
     Dosage: 10 MG, QD
     Route: 048
     Dates: start: 20130311, end: 20130603
  2. CREON [Concomitant]
     Dosage: 25000 U, UNK
     Route: 048
     Dates: start: 201209
  3. OMEPRAZOLE [Concomitant]
     Indication: PROPHYLAXIS
     Dosage: 20 MG, QD
     Route: 048
  4. PARACETAMOL [Concomitant]
     Indication: PAIN
     Dosage: 1 G, QDS, PRN
  5. SANDOSTATIN [Concomitant]
     Indication: NEUROENDOCRINE TUMOUR
     Dosage: UNK
     Route: 030
  6. NOVOMIX 30 [Concomitant]
     Indication: DIABETES MELLITUS
     Dosage: 6 U, BID
     Dates: start: 20130429

REACTIONS (2)
  - Escherichia sepsis [Recovering/Resolving]
  - Confusional state [Recovering/Resolving]
